FAERS Safety Report 19303176 (Version 1)
Quarter: 2021Q2

REPORT INFORMATION
  Report Type: Report from Study
  Country: US (occurrence: US)
  Receive Date: 20210525
  Receipt Date: 20210525
  Transmission Date: 20210717
  Serious: Yes (Hospitalization)
  Sender: FDA-Public Use
  Company Number: US-UCBSA-2021023821

PATIENT
  Age: 29 Year
  Sex: Male

DRUGS (2)
  1. LAMICTAL [Suspect]
     Active Substance: LAMOTRIGINE
     Indication: PRODUCT USED FOR UNKNOWN INDICATION
     Dosage: UNK
  2. BRIVARACETAM [Suspect]
     Active Substance: BRIVARACETAM
     Indication: SEIZURE
     Dosage: 150 MILLIGRAM, 2X/DAY (BID)

REACTIONS (4)
  - Seizure [Not Recovered/Not Resolved]
  - Product dose omission issue [Unknown]
  - Overdose [Unknown]
  - Wrong technique in product usage process [Unknown]

NARRATIVE: CASE EVENT DATE: 20201018
